FAERS Safety Report 21596392 (Version 1)
Quarter: 2022Q4

REPORT INFORMATION
  Report Type: Spontaneous
  Country: US (occurrence: US)
  Receive Date: 20221115
  Receipt Date: 20221115
  Transmission Date: 20230112
  Serious: Yes (Death, Other)
  Sender: FDA-Public Use
  Company Number: US-009507513-2211USA002698

PATIENT
  Sex: Female

DRUGS (1)
  1. KEYTRUDA [Suspect]
     Active Substance: PEMBROLIZUMAB
     Indication: Malignant melanoma
     Dosage: UNK UNK, Q3W
     Route: 042
     Dates: start: 2021

REACTIONS (7)
  - Myocardial infarction [Fatal]
  - Cerebrovascular accident [Fatal]
  - Malignant neoplasm progression [Unknown]
  - Memory impairment [Unknown]
  - Speech disorder [Unknown]
  - Fall [Unknown]
  - Drug ineffective [Unknown]

NARRATIVE: CASE EVENT DATE: 20220423
